FAERS Safety Report 9162439 (Version 1)
Quarter: 2013Q1

REPORT INFORMATION
  Report Type: Spontaneous
  Country: AU (occurrence: AU)
  Receive Date: 20130314
  Receipt Date: 20130314
  Transmission Date: 20140127
  Serious: Yes (Hospitalization)
  Sender: FDA-Public Use
  Company Number: AU-MYLANLABS-2013S1004674

PATIENT
  Age: 84 Year
  Sex: Male

DRUGS (12)
  1. COLCHICINE [Suspect]
     Indication: GOUT
     Dosage: 1MG DAILY FOR 3DAYS THEN REDUCED TO 0.5MG DAILY
     Route: 065
  2. COLCHICINE [Interacting]
     Indication: GOUT
     Dosage: 0.5MG DAILY
     Route: 065
  3. SIMVASTATIN [Interacting]
     Dosage: 40MG DAILY
     Route: 065
  4. PREDNISOLONE [Concomitant]
     Indication: ASTHMA
     Dosage: 5MG DAILY
     Route: 065
  5. FLUTICASONE PROPIONATE W/SALMETEROL [Concomitant]
     Indication: ASTHMA
     Route: 055
  6. EZETIMIBE [Concomitant]
     Dosage: 20MG DAILY
     Route: 065
  7. AMLODIPINE [Concomitant]
     Route: 065
  8. IRBESARTAN [Concomitant]
     Route: 065
  9. HYDROCHLOROTHIAZIDE [Concomitant]
     Route: 065
  10. CLOPIDOGREL [Concomitant]
     Route: 065
  11. RABEPRAZOLE [Concomitant]
     Route: 065
  12. OXYCODONE [Concomitant]
     Route: 065

REACTIONS (3)
  - Myopathy [Recovering/Resolving]
  - Colonic pseudo-obstruction [Recovering/Resolving]
  - Drug interaction [Recovered/Resolved]
